FAERS Safety Report 4741528-4 (Version None)
Quarter: 2005Q3

REPORT INFORMATION
  Report Type: 
  Country: None (occurrence: None)
  Receive Date: 20050808
  Receipt Date: 20050729
  Transmission Date: 20060218
  Serious: No
  Sender: FDA-Public Use
  Company Number: 11942

PATIENT
  Age: 19 Year
  Sex: Female

DRUGS (6)
  1. VINBLASTINE [Suspect]
     Indication: HODGKIN'S DISEASE
     Dosage: 10 MG
     Dates: start: 20050623, end: 20050623
  2. BLEOMYCIN [Suspect]
     Indication: HODGKIN'S DISEASE
     Dosage: 19200 IU
     Dates: start: 20050623, end: 20050623
  3. DEXAMETHASONE [Suspect]
     Indication: HODGKIN'S DISEASE
     Dosage: 8 MG
     Dates: start: 20050623, end: 20050623
  4. DOXORUBICIN HCL [Suspect]
     Indication: HODGKIN'S DISEASE
     Dosage: 48 MG
     Dates: start: 20050623, end: 20050623
  5. DACARBAZINE [Suspect]
     Indication: HODGKIN'S DISEASE
     Dosage: 720 MG
     Dates: start: 20050623, end: 20050623
  6. ONDANSETRON [Suspect]
     Indication: HODGKIN'S DISEASE
     Dosage: 8 MG
     Dates: start: 20050623, end: 20050623

REACTIONS (5)
  - BURNING SENSATION [None]
  - ERYTHEMA [None]
  - PITTING OEDEMA [None]
  - SWELLING [None]
  - SWELLING FACE [None]
